FAERS Safety Report 10017610 (Version 1)
Quarter: 2014Q1

REPORT INFORMATION
  Report Type: Spontaneous
  Country: US (occurrence: US)
  Receive Date: 20140318
  Receipt Date: 20140318
  Transmission Date: 20141002
  Serious: No
  Sender: FDA-Public Use
  Company Number: US-BRISTOL-MYERS SQUIBB COMPANY-17392150

PATIENT
  Age: 66 Year
  Sex: Male
  Weight: 87.53 kg

DRUGS (4)
  1. ERBITUX [Suspect]
     Indication: RECTAL CANCER
     Dosage: LAST TREATMENT ON 11FEB2013.
  2. LEUCOVORIN [Concomitant]
  3. 5-FLUOROURACIL [Concomitant]
  4. IRINOTECAN [Concomitant]

REACTIONS (5)
  - Skin fissures [Unknown]
  - Onychoclasis [Unknown]
  - Dry skin [Unknown]
  - Rash [Recovered/Resolved]
  - Alopecia [Unknown]
